FAERS Safety Report 6672161-5 (Version None)
Quarter: 2010Q2

REPORT INFORMATION
  Report Type: 
  Country: None (occurrence: None)
  Receive Date: 20100408
  Receipt Date: 20100330
  Transmission Date: 20101027
  Serious: Yes (Other)
  Sender: FDA-Public Use
  Company Number: US-RB-006426-10

PATIENT
  Age: 48 Year
  Sex: Female

DRUGS (1)
  1. MUCINEX D [Suspect]
     Dosage: I TOOK ONE TABLET
     Route: 048
     Dates: start: 20080101

REACTIONS (2)
  - FEELING JITTERY [None]
  - PSYCHOMOTOR HYPERACTIVITY [None]
